FAERS Safety Report 22866084 (Version 2)
Quarter: 2023Q4

REPORT INFORMATION
  Report Type: Report from Study
  Country: US (occurrence: US)
  Receive Date: 20230825
  Receipt Date: 20231113
  Transmission Date: 20240110
  Serious: Yes (Other)
  Sender: FDA-Public Use
  Company Number: US-JNJFOC-20230765836

PATIENT
  Sex: Female
  Weight: 82.7 kg

DRUGS (4)
  1. SELEXIPAG [Suspect]
     Active Substance: SELEXIPAG
     Indication: Pulmonary arterial hypertension
     Route: 048
  2. SELEXIPAG [Suspect]
     Active Substance: SELEXIPAG
     Route: 048
  3. ELIQUIS [Concomitant]
     Active Substance: APIXABAN
  4. OPSUMIT [Concomitant]
     Active Substance: MACITENTAN

REACTIONS (11)
  - Renal impairment [Unknown]
  - Haemoptysis [Unknown]
  - Back pain [Unknown]
  - Musculoskeletal disorder [Unknown]
  - Pain in jaw [Unknown]
  - Headache [Unknown]
  - Liver function test abnormal [Unknown]
  - Pain in extremity [Unknown]
  - Pain in extremity [Unknown]
  - Sinusitis [Unknown]
  - Nasopharyngitis [Unknown]
